FAERS Safety Report 5819676-7 (Version None)
Quarter: 2008Q3

REPORT INFORMATION
  Report Type: 
  Country: None (occurrence: None)
  Receive Date: 20080723
  Receipt Date: 20080711
  Transmission Date: 20090109
  Serious: Yes (Other)
  Sender: FDA-Public Use
  Company Number: US-PFIZER INC-2008035367

PATIENT
  Sex: Female

DRUGS (22)
  1. LYRICA [Suspect]
     Indication: FIBROMYALGIA
     Route: 048
  2. LYRICA [Suspect]
     Indication: PAIN
  3. AVONEX [Concomitant]
     Route: 030
     Dates: start: 20031027
  4. TRAZODONE HCL [Concomitant]
  5. DOXEPIN HCL [Concomitant]
  6. KLONOPIN [Concomitant]
  7. GABAPENTIN [Concomitant]
  8. OMEPRAZOLE [Concomitant]
  9. TYLENOL PM [Concomitant]
  10. BACLOFEN [Concomitant]
  11. VITAMIN TAB [Concomitant]
  12. STOOL SOFTENER [Concomitant]
  13. RITALIN [Concomitant]
  14. ESTRADIOL [Concomitant]
  15. CITALOPRAM HYDROBROMIDE [Concomitant]
  16. LORTAB [Concomitant]
  17. ALL OTHER THERAPEUTIC PRODUCTS [Concomitant]
  18. OXYGEN [Concomitant]
  19. ANTIHISTAMINES [Concomitant]
  20. LIDODERM [Concomitant]
  21. DURAGESIC-100 [Concomitant]
  22. CLONAZEPAM [Concomitant]

REACTIONS (7)
  - CONVULSION [None]
  - FEELING ABNORMAL [None]
  - PAIN [None]
  - SWELLING FACE [None]
  - SWOLLEN TONGUE [None]
  - TONGUE INJURY [None]
  - WEIGHT DECREASED [None]
